FAERS Safety Report 5853468-8 (Version None)
Quarter: 2008Q3

REPORT INFORMATION
  Report Type: 
  Country: None (occurrence: None)
  Receive Date: 20080820
  Receipt Date: 20080225
  Transmission Date: 20090109
  Serious: Yes (Hospitalization)
  Sender: FDA-Public Use
  Company Number: 2008-00219FE

PATIENT
  Age: 28 Year
  Sex: Female

DRUGS (5)
  1. MENOTROPHIN () (MENOTROPHIN) [Suspect]
     Indication: ANOVULATORY CYCLE
  2. HUMAN CHORIONIC GONADOROPIN () (CHORIONIC GONADOTROPHIN) [Suspect]
     Indication: ANOVULATORY CYCLE
  3. CLOMID [Suspect]
     Indication: ANOVULATORY CYCLE
  4. ESTROGEN CONTAINING ORAL CONTRACEPTIVES [Concomitant]
  5. X [Concomitant]

REACTIONS (18)
  - ANTIPHOSPHOLIPID ANTIBODIES [None]
  - ARTHRALGIA [None]
  - BETA-2 GLYCOPROTEIN ANTIBODY POSITIVE [None]
  - BLIGHTED OVUM [None]
  - BLOOD IMMUNOGLOBULIN G INCREASED [None]
  - BLOOD IMMUNOGLOBULIN M INCREASED [None]
  - CARDIAC MYXOMA [None]
  - CARDIOLIPIN ANTIBODY POSITIVE [None]
  - COMPLEMENT FACTOR C3 INCREASED [None]
  - COMPLEMENT FACTOR C4 INCREASED [None]
  - COMPLICATION OF PREGNANCY [None]
  - HIRSUTISM [None]
  - INTRACARDIAC THROMBUS [None]
  - MULTIPLE PREGNANCY [None]
  - OBESITY [None]
  - OVARIAN HYPERSTIMULATION SYNDROME [None]
  - PYREXIA [None]
  - TWIN PREGNANCY [None]
